FAERS Safety Report 9717306 (Version 2)
Quarter: 2013Q4

REPORT INFORMATION
  Report Type: Spontaneous
  Country: DE (occurrence: None)
  Receive Date: 20131125
  Receipt Date: 20131227
  Transmission Date: 20140711
  Serious: Yes (Other)
  Sender: FDA-Public Use
  Company Number: AUR-APL-2013-09717

PATIENT
  Age: 36 Year
  Sex: Female
  Weight: 58 kg

DRUGS (7)
  1. LAMOTRIGINE [Suspect]
     Indication: EPILEPSY
     Dosage: 300 MG/ DAY  (BEGINNING OF PREGNANCY 2 X 50MG; IN THE END; 2 X 150 MG], ORAL
     Route: 048
     Dates: start: 20120211, end: 20121029
  2. EPIRUBICIN [Suspect]
     Indication: BREAST CANCER
     Dosage: 156 MG TWICE DURING  PREGNANCY
     Dates: start: 20120914, end: 20121005
  3. CYCLOPHOSPHAMIDE [Suspect]
     Indication: BREAST CANCER
     Dosage: 1040 MG TWICE DURING PREGNANCY
     Dates: start: 20120914, end: 20121005
  4. FOLSAURE [Concomitant]
  5. FILGRASTIM (FILGRASTIM) [Concomitant]
  6. DEXAMETHASONE (DEXAMETHASONE) [Concomitant]
  7. ONDANSETRON (ONDANSETRON) [Concomitant]

REACTIONS (5)
  - Pregnancy [None]
  - Maternal exposure during pregnancy [None]
  - Invasive ductal breast carcinoma [None]
  - Premature rupture of membranes [None]
  - Caesarean section [None]
